FAERS Safety Report 6532170-3 (Version None)
Quarter: 2010Q1

REPORT INFORMATION
  Report Type: 
  Country: None (occurrence: None)
  Receive Date: 20100108
  Receipt Date: 20091225
  Transmission Date: 20100710
  Serious: Yes (Other)
  Sender: FDA-Public Use
  Company Number: B0623387A

PATIENT
  Age: 36 Year
  Sex: Female

DRUGS (6)
  1. LAMIVUDINE + ZIDOVUDINE [Suspect]
     Indication: HIV INFECTION
     Route: 065
  2. LOPINAVIR AND RITONAVIR [Suspect]
     Indication: HIV INFECTION
     Route: 065
  3. AZITHROMYCIN [Suspect]
     Route: 065
  4. PREDNISONE [Suspect]
     Route: 065
  5. FOSAMPRENAVIR [Suspect]
     Indication: HIV INFECTION
  6. EMTRICITABINE [Suspect]
     Indication: HIV INFECTION

REACTIONS (5)
  - DRUG EXPOSURE DURING PREGNANCY [None]
  - HEPATOTOXICITY [None]
  - LIVE BIRTH [None]
  - METABOLIC ACIDOSIS [None]
  - TRANSAMINASES ABNORMAL [None]
